FAERS Safety Report 21554207 (Version 7)
Quarter: 2022Q4

REPORT INFORMATION
  Report Type: Spontaneous
  Country: AU (occurrence: None)
  Receive Date: 20221104
  Receipt Date: 20221122
  Transmission Date: 20230113
  Serious: Yes (Other)
  Sender: FDA-Public Use
  Company Number: AU-ROCHE-3211362

PATIENT
  Sex: Male
  Weight: 85 kg

DRUGS (7)
  1. RITUXIMAB [Suspect]
     Active Substance: RITUXIMAB
     Indication: Mantle cell lymphoma recurrent
     Dosage: 3 CYCLES
     Route: 065
     Dates: start: 202103, end: 202106
  2. BENDAMUSTINE [Suspect]
     Active Substance: BENDAMUSTINE
     Indication: Mantle cell lymphoma recurrent
     Dosage: 3 CYCLES
     Route: 065
     Dates: start: 202103, end: 202106
  3. IBRUTINIB [Suspect]
     Active Substance: IBRUTINIB
     Indication: Mantle cell lymphoma recurrent
     Route: 065
     Dates: start: 202106, end: 202203
  4. IBRUTINIB [Suspect]
     Active Substance: IBRUTINIB
     Route: 065
     Dates: start: 202203, end: 202211
  5. VENETOCLAX [Suspect]
     Active Substance: VENETOCLAX
     Indication: Product used for unknown indication
     Route: 065
  6. FILGRASTIM [Concomitant]
     Active Substance: FILGRASTIM
  7. SULFAMETHOXAZOLE\TRIMETHOPRIM [Concomitant]
     Active Substance: SULFAMETHOXAZOLE\TRIMETHOPRIM

REACTIONS (4)
  - Ill-defined disorder [Unknown]
  - Splenomegaly [Unknown]
  - Anisocytosis [Unknown]
  - Prostatomegaly [Unknown]
